FAERS Safety Report 9707150 (Version 1)
Quarter: 2013Q4

REPORT INFORMATION
  Report Type: Spontaneous
  Country: US (occurrence: US)
  Receive Date: 20131125
  Receipt Date: 20131125
  Transmission Date: 20140711
  Serious: No
  Sender: FDA-Public Use
  Company Number: US-PFIZER INC-2013336290

PATIENT
  Age: 55 Year
  Sex: Male
  Weight: 79.37 kg

DRUGS (2)
  1. CELEBREX [Suspect]
     Indication: ACNE
     Dosage: UNK
     Dates: start: 201311
  2. CELEBREX [Suspect]
     Indication: BLOOD CHOLESTEROL

REACTIONS (2)
  - Off label use [Unknown]
  - Rash [Unknown]
